FAERS Safety Report 11021899 (Version 2)
Quarter: 2015Q2

REPORT INFORMATION
  Report Type: Spontaneous
  Country: US (occurrence: US)
  Receive Date: 20150413
  Receipt Date: 20150520
  Transmission Date: 20150821
  Serious: Yes (Death, Hospitalization, Other)
  Sender: FDA-Public Use
  Company Number: US-TEVA-553500USA

PATIENT
  Age: 54 Year
  Sex: Female
  Weight: 71.28 kg

DRUGS (14)
  1. MELOXICAM. [Concomitant]
     Active Substance: MELOXICAM
  2. ATARAX [Concomitant]
     Active Substance: HYDROXYZINE\HYDROXYZINE HYDROCHLORIDE
  3. AMLODIPINE [Concomitant]
     Active Substance: AMLODIPINE BESYLATE
  4. SERTRALINE [Concomitant]
     Active Substance: SERTRALINE HYDROCHLORIDE
  5. MAGNESIUM OXIDE. [Concomitant]
     Active Substance: MAGNESIUM OXIDE
  6. SYNRIBO [Suspect]
     Active Substance: OMACETAXINE MEPESUCCINATE
     Indication: CHRONIC MYELOID LEUKAEMIA
     Dosage: 4.36 MILLIGRAM DAILY; HOME ADMINISTRATION
     Route: 058
  7. ALPRAZOLAM. [Concomitant]
     Active Substance: ALPRAZOLAM
  8. HYDROXYCHLOROQUINE [Concomitant]
     Active Substance: HYDROXYCHLOROQUINE
  9. GABAPENTIN. [Concomitant]
     Active Substance: GABAPENTIN
  10. ENALAPRIL [Concomitant]
     Active Substance: ENALAPRIL
  11. TRAMADOL [Concomitant]
     Active Substance: TRAMADOL
     Indication: PAIN
  12. SEROQUEL [Concomitant]
     Active Substance: QUETIAPINE FUMARATE
  13. PERCOCET [Concomitant]
     Active Substance: ACETAMINOPHEN\OXYCODONE HYDROCHLORIDE
     Indication: PAIN
     Dosage: 10/325, FREQUENCY NOT PROVIDED
  14. ZOLPIDEM [Concomitant]
     Active Substance: ZOLPIDEM\ZOLPIDEM TARTRATE
     Indication: INSOMNIA

REACTIONS (4)
  - Malaise [Not Recovered/Not Resolved]
  - Death [Fatal]
  - Decreased appetite [Not Recovered/Not Resolved]
  - Nausea [Not Recovered/Not Resolved]

NARRATIVE: CASE EVENT DATE: 20150405
